FAERS Safety Report 6594636-X (Version None)
Quarter: 2010Q1

REPORT INFORMATION
  Report Type: 
  Country: None (occurrence: None)
  Receive Date: 20100222
  Receipt Date: 20091015
  Transmission Date: 20100710
  Serious: No
  Sender: FDA-Public Use
  Company Number: US-BRISTOL-MYERS SQUIBB COMPANY-14818447

PATIENT
  Age: 75 Year
  Sex: Female
  Weight: 75 kg

DRUGS (3)
  1. TAXOL [Suspect]
     Indication: LUNG CARCINOMA CELL TYPE UNSPECIFIED STAGE IV
     Dosage: HAD 4 TREATMENTS
     Dates: end: 20090101
  2. VICODIN [Concomitant]
  3. FOLIC ACID [Concomitant]

REACTIONS (6)
  - ALOPECIA [None]
  - ASTHENIA [None]
  - BONE PAIN [None]
  - DIZZINESS [None]
  - HYPOAESTHESIA [None]
  - NAUSEA [None]
